FAERS Safety Report 22373498 (Version 2)
Quarter: 2023Q2

REPORT INFORMATION
  Report Type: Spontaneous
  Country: HU (occurrence: HU)
  Receive Date: 20230526
  Receipt Date: 20230614
  Transmission Date: 20230722
  Serious: Yes (Other)
  Sender: FDA-Public Use
  Company Number: None

PATIENT
  Age: 65 Year
  Sex: Female

DRUGS (4)
  1. METFORMIN [Suspect]
     Active Substance: METFORMIN HYDROCHLORIDE
     Indication: Diabetes mellitus
     Dosage: UNK
     Route: 065
  2. INFLUENZA VIRUS VACCINE [Suspect]
     Active Substance: INFLUENZA VIRUS VACCINE
     Indication: Immunisation
     Dosage: UNK
     Route: 065
     Dates: start: 2017
  3. INFLUENZA VIRUS VACCINE [Suspect]
     Active Substance: INFLUENZA VIRUS VACCINE
     Indication: Prophylaxis
  4. INFLUENZA VIRUS VACCINE [Suspect]
     Active Substance: INFLUENZA VIRUS VACCINE
     Indication: Influenza immunisation

REACTIONS (15)
  - Papillitis [Unknown]
  - Retinal thickening [Recovering/Resolving]
  - Lenticular opacities [Recovering/Resolving]
  - Visual impairment [Recovering/Resolving]
  - Cystoid macular oedema [Recovering/Resolving]
  - Vision blurred [Recovering/Resolving]
  - Optic neuritis [Recovering/Resolving]
  - Condition aggravated [Recovering/Resolving]
  - Fundoscopy abnormal [Unknown]
  - Visual acuity tests abnormal [Unknown]
  - Optical coherence tomography abnormal [Unknown]
  - Slit-lamp tests abnormal [Unknown]
  - Fluorescence angiogram abnormal [Unknown]
  - Cataract [Recovering/Resolving]
  - Type 2 diabetes mellitus [Recovering/Resolving]
